FAERS Safety Report 17570712 (Version 1)
Quarter: 2020Q1

REPORT INFORMATION
  Report Type: Spontaneous
  Country: None (occurrence: US)
  Receive Date: 20200323
  Receipt Date: 20200323
  Transmission Date: 20200409
  Serious: Yes (Life-Threatening, Hospitalization, Other)
  Sender: FDA-Public Use
  Company Number: US-ORION CORPORATION ORION PHARMA-20_00008712

PATIENT
  Age: 53 Year
  Sex: Female

DRUGS (4)
  1. CORTICOSTEROIDS [Concomitant]
     Active Substance: CORTICOSTEROID NOS
     Dosage: HIGH DOSE
     Route: 042
  2. METHOTREXATE. [Suspect]
     Active Substance: METHOTREXATE
     Indication: STILL^S DISEASE
     Route: 065
  3. CORTICOSTEROIDS [Concomitant]
     Active Substance: CORTICOSTEROID NOS
     Dosage: HIGH DOSE
     Route: 065
  4. CORTICOSTEROIDS [Concomitant]
     Active Substance: CORTICOSTEROID NOS
     Dosage: LOW DOSE
     Route: 065

REACTIONS (9)
  - Haemophagocytic lymphohistiocytosis [Recovering/Resolving]
  - Hypotension [Recovering/Resolving]
  - Thrombocytopenia [Recovering/Resolving]
  - Schistocytosis [Recovering/Resolving]
  - Disseminated intravascular coagulation [Recovering/Resolving]
  - Product use in unapproved indication [Unknown]
  - Disseminated cytomegaloviral infection [Recovered/Resolved]
  - Chronic gastritis [Recovering/Resolving]
  - Odynophagia [Recovering/Resolving]
